FAERS Safety Report 11578478 (Version 2)
Quarter: 2015Q4

REPORT INFORMATION
  Report Type: Spontaneous
  Country: BR (occurrence: BR)
  Receive Date: 20150930
  Receipt Date: 20151008
  Transmission Date: 20160304
  Serious: Yes (Hospitalization, Other)
  Sender: FDA-Public Use
  Company Number: BR-VALIDUS PHARMACEUTICALS LLC-BR-2015VAL000591

PATIENT
  Sex: Male

DRUGS (1)
  1. PARLODEL [Suspect]
     Active Substance: BROMOCRIPTINE MESYLATE
     Indication: PRODUCT USED FOR UNKNOWN INDICATION
     Dosage: UNK

REACTIONS (12)
  - Blood prolactin increased [Unknown]
  - Vomiting [Unknown]
  - Vision blurred [Unknown]
  - Neoplasm [Unknown]
  - Blindness transient [Unknown]
  - Diarrhoea [Unknown]
  - Adenoma benign [Unknown]
  - Nervousness [Unknown]
  - Blindness unilateral [Unknown]
  - Cerebrovascular accident [Unknown]
  - Presyncope [Unknown]
  - Headache [Unknown]
